FAERS Safety Report 9681269 (Version 5)
Quarter: 2013Q4

REPORT INFORMATION
  Report Type: Report from Study
  Country: JP (occurrence: JP)
  Receive Date: 20131111
  Receipt Date: 20131212
  Transmission Date: 20140711
  Serious: Yes (Hospitalization, Other)
  Sender: FDA-Public Use
  Company Number: JP-ABBVIE-13P-087-1047864-00

PATIENT
  Age: 26 Year
  Sex: Male
  Weight: 49.5 kg

DRUGS (6)
  1. HUMIRA [Suspect]
     Indication: CROHN^S DISEASE
     Route: 058
     Dates: start: 20120507, end: 20120507
  2. HUMIRA [Suspect]
     Dates: start: 20120521, end: 20120521
  3. HUMIRA [Suspect]
     Dates: start: 20120604, end: 20130101
  4. LOPERAMIDE HYDROCHLORIDE [Concomitant]
     Indication: CROHN^S DISEASE
     Route: 048
  5. MESALAZINE [Concomitant]
     Indication: CROHN^S DISEASE
     Route: 048
  6. AZATHIOPRINE [Concomitant]
     Indication: CROHN^S DISEASE
     Route: 048

REACTIONS (7)
  - Renal failure [Unknown]
  - Gastroenteritis viral [Recovering/Resolving]
  - Dehydration [Unknown]
  - Prerenal failure [Recovered/Resolved]
  - Immunosuppression [Unknown]
  - Gastroenteritis [Recovered/Resolved]
  - Prerenal failure [Recovered/Resolved]
